FAERS Safety Report 5057993-1 (Version None)
Quarter: 2006Q3

REPORT INFORMATION
  Report Type: 
  Country: None (occurrence: None)
  Receive Date: 20060721
  Receipt Date: 20060504
  Transmission Date: 20061208
  Serious: No
  Sender: FDA-Public Use
  Company Number: US-GLAXOSMITHKLINE-A0604375A

PATIENT
  Age: 65 Year
  Sex: Male

DRUGS (4)
  1. AVANDIA [Suspect]
     Route: 048
     Dates: start: 20050101
  2. METFORMIN [Concomitant]
  3. ZOCOR [Concomitant]
  4. CELEBREX [Concomitant]

REACTIONS (1)
  - BLOOD GLUCOSE INCREASED [None]
